FAERS Safety Report 11649780 (Version 2)
Quarter: 2017Q4

REPORT INFORMATION
  Report Type: Spontaneous
  Country: US (occurrence: US)
  Receive Date: 20151021
  Receipt Date: 20171222
  Transmission Date: 20180320
  Serious: Yes (Hospitalization)
  Sender: FDA-Public Use
  Company Number: US-IPCA LABORATORIES LIMITED-IPC201510-000690

PATIENT
  Age: 7 Month
  Sex: Female
  Weight: 6 kg

DRUGS (2)
  1. PROPRANOLOL HYDROCHLORIDE TABLETS, USP [Suspect]
     Active Substance: PROPRANOLOL HYDROCHLORIDE
     Indication: HAEMANGIOMA
     Dosage: UNK,UNK,36 MG FOR 3 DOSES OR 17 MG/KG IN A DAY
  2. PROPRANOLOL HYDROCHLORIDE TABLETS, USP [Suspect]
     Active Substance: PROPRANOLOL HYDROCHLORIDE
     Dosage: 3.6,MG,TID

REACTIONS (5)
  - Sinus bradycardia [Recovered/Resolved]
  - Off label use [Unknown]
  - Lethargy [Recovering/Resolving]
  - Toxicity to various agents [Unknown]
  - Accidental overdose [Unknown]
